FAERS Safety Report 7171313-8 (Version None)
Quarter: 2010Q4

REPORT INFORMATION
  Report Type: 
  Country: None (occurrence: None)
  Receive Date: 20101217
  Receipt Date: 20101206
  Transmission Date: 20110411
  Serious: Yes (Hospitalization)
  Sender: FDA-Public Use
  Company Number: DE-NAPPMUNDI-DEU_2009_0005169

PATIENT
  Age: 81 Year
  Sex: Female
  Weight: 68 kg

DRUGS (15)
  1. PALLADONE [Suspect]
     Indication: PAIN
     Dosage: 1.3 MG, SEE TEXT
     Route: 048
     Dates: start: 20090106
  2. INSULIN ACTRAPID HUMAN [Suspect]
     Indication: TYPE 2 DIABETES MELLITUS
     Dosage: UNK
     Dates: start: 20050101
  3. INSULIN PROTAPHANE                 /00646002/ [Suspect]
     Indication: TYPE 2 DIABETES MELLITUS
     Dosage: UNK
     Dates: start: 20050101
  4. ARCOXIA [Concomitant]
     Indication: OSTEOARTHRITIS
     Dates: start: 20080601
  5. ATACAND HCT [Concomitant]
     Indication: HYPERTENSION
  6. CALCIMAGON-D3 [Concomitant]
     Indication: OSTEOMA CUTIS
  7. CITALOPRAM HYDROBROMIDE [Concomitant]
     Indication: DEPRESSION
     Dates: start: 20071201
  8. HYDROCHLOROTHIAZIDE [Concomitant]
     Indication: HYPERTENSION
     Dates: start: 20071201
  9. L-THYROXINE                        /00068001/ [Concomitant]
     Indication: HYPOTHYROIDISM
  10. LOCOL [Concomitant]
     Indication: HYPERLIPIDAEMIA
  11. OMEPRAZOLE [Concomitant]
     Indication: GASTRIC ULCER
  12. PLAVIX [Concomitant]
     Indication: PERIPHERAL ARTERIAL OCCLUSIVE DISEASE
  13. TRAMADOL                           /00599202/ [Concomitant]
     Indication: DEPRESSION
  14. SPIRIVA [Concomitant]
  15. VIANI [Concomitant]

REACTIONS (2)
  - HYPOGLYCAEMIA [None]
  - SOMNOLENCE [None]
